FAERS Safety Report 5227508-3 (Version None)
Quarter: 2007Q1

REPORT INFORMATION
  Report Type: 
  Country: None (occurrence: None)
  Receive Date: 20070202
  Receipt Date: 20070126
  Transmission Date: 20070707
  Serious: Yes (Other)
  Sender: FDA-Public Use
  Company Number: US-SHR-US-2006-038420

PATIENT
  Age: 34 Year
  Sex: Female
  Weight: 81 kg

DRUGS (1)
  1. YASMIN [Suspect]
     Indication: ORAL CONTRACEPTION
     Dosage: 1 TAB(S), 1X/DAY
     Route: 048
     Dates: start: 20050101, end: 20060901

REACTIONS (11)
  - ARRHYTHMIA [None]
  - BLINDNESS UNILATERAL [None]
  - BRONCHITIS [None]
  - CARDIAC MURMUR [None]
  - CHEST PAIN [None]
  - DEHYDRATION [None]
  - DYSPNOEA [None]
  - EAR CONGESTION [None]
  - FATIGUE [None]
  - OTOTOXICITY [None]
  - WEIGHT DECREASED [None]
